FAERS Safety Report 20096599 (Version 1)
Quarter: 2021Q4

REPORT INFORMATION
  Report Type: Spontaneous
  Country: US (occurrence: None)
  Receive Date: 20211119
  Receipt Date: 20211119
  Transmission Date: 20220303
  Serious: Yes (Hospitalization, Disabling)
  Sender: FDA-Public Use
  Company Number: None

PATIENT
  Age: 8 Year
  Sex: Female
  Weight: 23.85 kg

DRUGS (2)
  1. ATIVAN [Suspect]
     Active Substance: LORAZEPAM
     Indication: Product used for unknown indication
  2. MONTELUKAST [Suspect]
     Active Substance: MONTELUKAST SODIUM

REACTIONS (8)
  - Somnambulism [None]
  - Seizure [None]
  - Oxygen saturation decreased [None]
  - Hallucination [None]
  - Aggression [None]
  - Muscular weakness [None]
  - Headache [None]
  - Affective disorder [None]

NARRATIVE: CASE EVENT DATE: 20210327
